FAERS Safety Report 15588242 (Version 2)
Quarter: 2018Q4

REPORT INFORMATION
  Report Type: Spontaneous
  Country: US (occurrence: US)
  Receive Date: 20181105
  Receipt Date: 20181105
  Transmission Date: 20190205
  Serious: No
  Sender: FDA-Public Use
  Company Number: US-JAZZ-JPI-P-028978

PATIENT
  Age: 32 Year
  Sex: Female

DRUGS (2)
  1. XYREM [Suspect]
     Active Substance: SODIUM OXYBATE
     Indication: NARCOLEPSY
     Dosage: 2.25 G, BID
     Route: 048
     Dates: start: 20121215
  2. XYREM [Suspect]
     Active Substance: SODIUM OXYBATE
     Indication: CATAPLEXY

REACTIONS (6)
  - Flatulence [Unknown]
  - Dizziness [Unknown]
  - Feeling drunk [Unknown]
  - Abdominal pain [Unknown]
  - Pollakiuria [Unknown]
  - Fatigue [Unknown]

NARRATIVE: CASE EVENT DATE: 201212
